FAERS Safety Report 6073102-4 (Version None)
Quarter: 2009Q1

REPORT INFORMATION
  Report Type: 
  Country: None (occurrence: None)
  Receive Date: 20090211
  Receipt Date: 20090205
  Transmission Date: 20090719
  Serious: Yes (Other)
  Sender: FDA-Public Use
  Company Number: CN-JNJFOC-20090201556

PATIENT
  Age: 55 Year
  Sex: Female

DRUGS (1)
  1. NIZORAL [Suspect]
     Indication: FUNGAL INFECTION
     Dosage: TWO 200 MG TABLETS TOTAL
     Route: 048

REACTIONS (2)
  - GENERALISED ERYTHEMA [None]
  - GENERALISED OEDEMA [None]
